FAERS Safety Report 5299051-7 (Version None)
Quarter: 2007Q2

REPORT INFORMATION
  Report Type: 
  Country: None (occurrence: None)
  Receive Date: 20070417
  Receipt Date: 20070409
  Transmission Date: 20071010
  Serious: Yes (Hospitalization)
  Sender: FDA-Public Use
  Company Number: US-GLAXOSMITHKLINE-A0626326A

PATIENT
  Age: 13 Year
  Sex: Female

DRUGS (8)
  1. PAXIL [Suspect]
     Indication: ANXIETY
     Dosage: 10MG PER DAY
     Route: 048
     Dates: start: 19980101, end: 20030101
  2. TENEX [Suspect]
     Dosage: 2MG TWICE PER DAY
     Route: 048
  3. TYLENOL [Suspect]
     Dosage: 1BT SINGLE DOSE
     Route: 048
     Dates: start: 20010207, end: 20010207
  4. ZOLOFT [Suspect]
     Dosage: 15TAB SINGLE DOSE
     Route: 048
     Dates: start: 20010207, end: 20010207
  5. PRAVACHOL [Suspect]
     Route: 048
     Dates: start: 20010207, end: 20010207
  6. CORGARD [Suspect]
     Dosage: 1TAB SINGLE DOSE
     Route: 048
     Dates: start: 20010207, end: 20010207
  7. ZANTAC [Suspect]
     Dosage: 8TAB SINGLE DOSE
     Route: 048
     Dates: start: 20070201, end: 20070201
  8. ORTHO TRI-CYCLEN [Concomitant]

REACTIONS (20)
  - ANGER [None]
  - ANXIETY [None]
  - ARRHYTHMIA [None]
  - FEELING OF DESPAIR [None]
  - HEPATIC ENZYME INCREASED [None]
  - IRRITABILITY [None]
  - LETHARGY [None]
  - MAJOR DEPRESSION [None]
  - MENTAL STATUS CHANGES [None]
  - MULTIPLE DRUG OVERDOSE [None]
  - NAUSEA [None]
  - PALLOR [None]
  - POOR QUALITY SLEEP [None]
  - POST-TRAUMATIC STRESS DISORDER [None]
  - SINUS BRADYCARDIA [None]
  - SOMNOLENCE [None]
  - SUICIDE ATTEMPT [None]
  - TEARFULNESS [None]
  - THOUGHT INSERTION [None]
  - VOMITING [None]
